FAERS Safety Report 22033211 (Version 2)
Quarter: 2023Q1

REPORT INFORMATION
  Report Type: Report from Study
  Country: US (occurrence: US)
  Receive Date: 20230224
  Receipt Date: 20230227
  Transmission Date: 20230418
  Serious: Yes (Other)
  Sender: FDA-Public Use
  Company Number: US-009507513-2302USA002889

PATIENT
  Sex: Male

DRUGS (1)
  1. PEMBROLIZUMAB [Suspect]
     Active Substance: PEMBROLIZUMAB
     Indication: Lung neoplasm malignant
     Dosage: UNK
     Route: 042
     Dates: start: 202110

REACTIONS (4)
  - Radiotherapy [Unknown]
  - Ill-defined disorder [Unknown]
  - Eating disorder [Unknown]
  - Pain [Unknown]

NARRATIVE: CASE EVENT DATE: 20230101
